FAERS Safety Report 7948670-5 (Version None)
Quarter: 2011Q4

REPORT INFORMATION
  Report Type: 
  Country: None (occurrence: None)
  Receive Date: 20111130
  Receipt Date: 20111130
  Transmission Date: 20120403
  Serious: Yes (Other)
  Sender: FDA-Public Use
  Company Number: None

PATIENT
  Sex: Male
  Weight: 70.31 kg

DRUGS (9)
  1. VITAMIN B-12 [Concomitant]
  2. LEVOTHYROXINE SODIUM [Concomitant]
  3. NITROGLYCERIN [Concomitant]
  4. GLIPIZIDE [Concomitant]
  5. PRADAXA [Suspect]
  6. METFORMIN HCL [Concomitant]
  7. SIMVASTATIN [Concomitant]
  8. ACETAMINOPHEN [Concomitant]
  9. DOCUSATE [Concomitant]

REACTIONS (3)
  - DECREASED APPETITE [None]
  - WEIGHT DECREASED [None]
  - ASTHENIA [None]
